FAERS Safety Report 9331247 (Version 1)
Quarter: 2013Q2

REPORT INFORMATION
  Report Type: Spontaneous
  Country: BR (occurrence: None)
  Receive Date: 20130531
  Receipt Date: 20130531
  Transmission Date: 20140414
  Serious: Yes (Other)
  Sender: FDA-Public Use
  Company Number: AUR-APL-2013-04426

PATIENT
  Age: 45 Year
  Sex: Male
  Weight: 90 kg

DRUGS (2)
  1. PAROXETINE (PAROXETINE) [Suspect]
     Indication: PREMATURE EJACULATION
     Dates: start: 2011, end: 201301
  2. PAROXETINE HYDROCHLORIDE [Suspect]
     Indication: PREMATURE EJACULATION
     Dates: start: 20130201

REACTIONS (5)
  - Hyperhidrosis [None]
  - Product substitution issue [None]
  - Product quality issue [None]
  - Drug ineffective [None]
  - Nasal septum deviation [None]
